FAERS Safety Report 4663386-9 (Version None)
Quarter: 2005Q2

REPORT INFORMATION
  Report Type: 
  Country: None (occurrence: None)
  Receive Date: 20050513
  Receipt Date: 20050505
  Transmission Date: 20051028
  Serious: Yes (Life-Threatening, Hospitalization, Disabling)
  Sender: FDA-Public Use
  Company Number: 200510905BWH

PATIENT
  Age: 65 Year
  Sex: Male

DRUGS (11)
  1. DACARBAZINE [Suspect]
     Indication: MALIGNANT MELANOMA
     Dosage: 2340 MG, TOTAL DAILY, INTRAVENOUS
     Route: 042
     Dates: start: 20030107
  2. GENASENSE [Suspect]
     Indication: MALIGNANT MELANOMA
     Dosage: 728 MG, TOTAL DAILY, INTRAVENOUS
     Route: 042
     Dates: start: 20030102, end: 20030107
  3. ASPIRIN [Concomitant]
  4. ATENOLOL [Concomitant]
  5. QUINAPRIL [Concomitant]
  6. ATORVASTATIN CALCIUM [Concomitant]
  7. TELMISARTAN [Concomitant]
  8. METFORMIN [Concomitant]
  9. GLIPIZIDE [Concomitant]
  10. GABAPENTIN [Concomitant]
  11. OXYCODONE HCL [Concomitant]

REACTIONS (20)
  - ANOREXIA [None]
  - BLOOD CREATININE INCREASED [None]
  - BLOOD GLUCOSE INCREASED [None]
  - BLOOD POTASSIUM INCREASED [None]
  - BLOOD UREA INCREASED [None]
  - BRAIN OEDEMA [None]
  - CEREBRAL HAEMATOMA [None]
  - DIFFICULTY IN WALKING [None]
  - DISEASE PROGRESSION [None]
  - FALL [None]
  - HAEMOGLOBIN DECREASED [None]
  - HAEMORRHAGE INTRACRANIAL [None]
  - HEAD INJURY [None]
  - MALIGNANT MELANOMA [None]
  - METASTASES TO CENTRAL NERVOUS SYSTEM [None]
  - MUSCULAR WEAKNESS [None]
  - NAUSEA [None]
  - ORAL INTAKE REDUCED [None]
  - THROMBOCYTOPENIA [None]
  - WHITE BLOOD CELL COUNT DECREASED [None]
